FAERS Safety Report 8887578 (Version 2)
Quarter: 2012Q4

REPORT INFORMATION
  Report Type: 
  Country: US (occurrence: None)
  Receive Date: 20121106
  Receipt Date: 20121115
  Transmission Date: 20130627
  Serious: Yes (Hospitalization)
  Sender: FDA-Public Use
  Company Number: None

PATIENT
  Age: 68 None
  Sex: Female
  Weight: 58.97 kg

DRUGS (5)
  1. METHYLPREDNISOLONE [Suspect]
     Indication: SLIPPED DISC
     Dates: start: 20120912, end: 20120912
  2. FLOROGUIDE [Suspect]
     Dates: start: 20120912, end: 20120912
  3. CELESTONE SOLUSPAN [Suspect]
  4. DEPO-MEDROL [Suspect]
  5. MARCAINE [Suspect]

REACTIONS (1)
  - Meningitis bacterial [None]
